FAERS Safety Report 5480252-X (Version None)
Quarter: 2007Q4

REPORT INFORMATION
  Report Type: 
  Country: None (occurrence: None)
  Receive Date: 20071003
  Receipt Date: 20070924
  Transmission Date: 20080405
  Serious: Yes (Death)
  Sender: FDA-Public Use
  Company Number: GXKR2007AU08296

PATIENT
  Age: 67 Year
  Sex: Female

DRUGS (3)
  1. CYCLOSPORINE [Suspect]
  2. PREDNISOLONE [Suspect]
  3. SIROLIMUS(SIROLIMUS) UNKNOWN [Suspect]

REACTIONS (7)
  - BLOOD CREATININE INCREASED [None]
  - GENERAL PHYSICAL HEALTH DETERIORATION [None]
  - LYMPHADENOPATHY [None]
  - METASTASES TO BONE MARROW [None]
  - METASTASES TO LIVER [None]
  - NEUROENDOCRINE CARCINOMA OF THE SKIN [None]
  - OEDEMA PERIPHERAL [None]
